FAERS Safety Report 8555315-2 (Version None)
Quarter: 2012Q3

REPORT INFORMATION
  Report Type: 
  Country: None (occurrence: None)
  Receive Date: 20120731
  Receipt Date: 20120723
  Transmission Date: 20120928
  Serious: Yes (Hospitalization)
  Sender: FDA-Public Use
  Company Number: US-009507513-1207USA010782

PATIENT

DRUGS (7)
  1. ZOCOR [Suspect]
     Dosage: 40 MG, UNK
     Route: 048
  2. CYANOCOBALAMIN [Concomitant]
     Dosage: 50 MICROGRAM, TID
  3. AMOXICILLIN [Concomitant]
     Dosage: 500 MG, TID
  4. OMEPRAZOLE [Concomitant]
     Dosage: 20 MG, QD
  5. ALBUTEROL [Concomitant]
     Dosage: 2 DF, PRN
  6. PREDNISOLONE [Suspect]
     Dosage: 30 MG, UNK
     Route: 048
  7. FOLIC ACID [Concomitant]
     Dosage: 5 MG, QD

REACTIONS (7)
  - RENAL FAILURE ACUTE [None]
  - ANURIA [None]
  - HYPERKALAEMIA [None]
  - PAIN [None]
  - RHABDOMYOLYSIS [None]
  - BLOOD PRESSURE INCREASED [None]
  - TACHYCARDIA [None]
